FAERS Safety Report 10068785 (Version 3)
Quarter: 2014Q2

REPORT INFORMATION
  Report Type: Spontaneous
  Country: US (occurrence: US)
  Receive Date: 20140409
  Receipt Date: 20140506
  Transmission Date: 20141212
  Serious: Yes (Life-Threatening, Other)
  Sender: FDA-Public Use
  Company Number: US-009507513-1404USA002515

PATIENT
  Age: 32 Year
  Sex: Female
  Weight: 78.5 kg

DRUGS (2)
  1. NEXPLANON [Suspect]
     Indication: CONTRACEPTION
     Dosage: 68 MG, ONE ROD EVERY 3 YEARS
     Route: 059
     Dates: start: 20130225, end: 20140404
  2. LEVOTHYROXINE SODIUM [Concomitant]
     Route: 048

REACTIONS (5)
  - Ectopic pregnancy termination [Unknown]
  - Ectopic pregnancy [Recovered/Resolved]
  - Pelvic pain [Recovered/Resolved]
  - Vaginal haemorrhage [Recovered/Resolved]
  - Unintended pregnancy [Recovered/Resolved]
